FAERS Safety Report 10301410 (Version 1)
Quarter: 2014Q3

REPORT INFORMATION
  Report Type: Spontaneous
  Country: US (occurrence: None)
  Receive Date: 20140709
  Receipt Date: 20140709
  Transmission Date: 20150326
  Serious: Yes (Other)
  Sender: FDA-Public Use
  Company Number: None

PATIENT
  Age: 66 Year
  Sex: Female
  Weight: 66.68 kg

DRUGS (1)
  1. LEVETIRACETAM 500MG LUPIN [Suspect]
     Active Substance: LEVETIRACETAM
     Indication: PARTIAL SEIZURES
     Dosage: 2+1/2 PILLS  TWICE DAILY TAKEN BY MOUTH
     Route: 048
     Dates: start: 20140428, end: 20140704

REACTIONS (6)
  - Product quality issue [None]
  - Nightmare [None]
  - Dizziness [None]
  - Postictal state [None]
  - Product substitution issue [None]
  - Convulsion [None]

NARRATIVE: CASE EVENT DATE: 20140704
